FAERS Safety Report 4568464-0 (Version None)
Quarter: 2005Q1

REPORT INFORMATION
  Report Type: 
  Country: None (occurrence: None)
  Receive Date: 20050131
  Receipt Date: 20050117
  Transmission Date: 20050727
  Serious: No
  Sender: FDA-Public Use
  Company Number: 02100-JPN-05-0034

PATIENT
  Age: 72 Year
  Sex: Male

DRUGS (9)
  1. CILOSTAZOL [Suspect]
     Indication: CEREBRAL INFARCTION
     Dosage: 200 MG
     Route: 048
     Dates: start: 20040604, end: 20040607
  2. OZAGREL SODIUM [Suspect]
     Indication: CEREBRAL INFARCTION
     Dosage: 80 MG
     Route: 042
     Dates: start: 20040603, end: 20040609
  3. HEPARIN SODIUM [Suspect]
     Indication: CEREBRAL INFARCTION
     Dosage: 12 KIU
     Route: 042
     Dates: start: 20040603, end: 20040609
  4. WARFARIN POTASSIUM [Suspect]
     Indication: CEREBRAL INFARCTION
     Dosage: 1 MG
     Route: 048
     Dates: start: 20040604, end: 20040608
  5. ASPIRIN DIALUMINATE [Suspect]
     Indication: CEREBRAL INFARCTION
     Dosage: 81 MG
     Route: 048
     Dates: start: 20040604
  6. LOXOPROFEN SODIUM [Concomitant]
  7. MELOXICAM [Concomitant]
  8. AMLODIPINE BESYLATE [Concomitant]
  9. FAMOTIDINE [Concomitant]

REACTIONS (2)
  - CEREBRAL HAEMATOMA [None]
  - HAEMORRHAGIC INFARCTION [None]
